FAERS Safety Report 13688047 (Version 1)
Quarter: 2017Q2

REPORT INFORMATION
  Report Type: Spontaneous
  Country: FR (occurrence: FR)
  Receive Date: 20170626
  Receipt Date: 20170626
  Transmission Date: 20170830
  Serious: Yes (Hospitalization)
  Sender: FDA-Public Use
  Company Number: FR-ROCHE-1950386

PATIENT
  Age: 58 Year
  Sex: Female

DRUGS (15)
  1. KEYTRUDA [Suspect]
     Active Substance: PEMBROLIZUMAB
     Indication: MALIGNANT MELANOMA
     Dosage: POWDER TO DISSOLVE AND DILUTE PRIOR TO INFUSION
     Route: 065
     Dates: start: 20150728, end: 201605
  2. LANSOYL [Concomitant]
     Active Substance: MINERAL OIL
     Route: 065
  3. TRAMADOL LP [Concomitant]
     Active Substance: TRAMADOL HYDROCHLORIDE
     Route: 065
     Dates: end: 20170314
  4. TRAMADOL LP [Concomitant]
     Active Substance: TRAMADOL HYDROCHLORIDE
     Route: 065
     Dates: end: 20170314
  5. VENLAFAXINE [Concomitant]
     Active Substance: VENLAFAXINE HYDROCHLORIDE
     Route: 065
  6. NEURONTIN [Concomitant]
     Active Substance: GABAPENTIN
     Route: 065
     Dates: end: 20170314
  7. ZELBORAF [Suspect]
     Active Substance: VEMURAFENIB
     Indication: MALIGNANT MELANOMA
     Route: 065
     Dates: start: 20160603
  8. INEXIUM [Concomitant]
     Active Substance: ESOMEPRAZOLE
     Route: 065
  9. COTELLIC [Suspect]
     Active Substance: COBIMETINIB
     Indication: MALIGNANT MELANOMA
     Route: 065
     Dates: start: 20160603
  10. INNOHEP [Concomitant]
     Active Substance: TINZAPARIN SODIUM
     Route: 065
  11. LYRICA [Concomitant]
     Active Substance: PREGABALIN
     Route: 065
  12. DOLIPRANE [Concomitant]
     Active Substance: ACETAMINOPHEN
     Route: 065
  13. OXYCONTIN [Concomitant]
     Active Substance: OXYCODONE HYDROCHLORIDE
     Route: 065
  14. DIFFU K [Concomitant]
     Active Substance: POTASSIUM CHLORIDE
     Route: 065
  15. UVEDOSE [Concomitant]
     Active Substance: CHOLECALCIFEROL
     Dosage: 1 AMPOULE
     Route: 065

REACTIONS (1)
  - Lung disorder [Recovering/Resolving]

NARRATIVE: CASE EVENT DATE: 201510
